FAERS Safety Report 7671722-4 (Version None)
Quarter: 2011Q3

REPORT INFORMATION
  Report Type: 
  Country: None (occurrence: None)
  Receive Date: 20110809
  Receipt Date: 20110802
  Transmission Date: 20111222
  Serious: Yes (Other)
  Sender: FDA-Public Use
  Company Number: BR-PFIZER INC-2011175859

PATIENT
  Age: 35 Year
  Sex: Male
  Weight: 81 kg

DRUGS (1)
  1. CELEBREX [Suspect]
     Indication: PAIN
     Dosage: 200 MG, EVERY 12 HOURS
     Route: 048
     Dates: start: 20110726, end: 20110727

REACTIONS (5)
  - ERYTHEMA [None]
  - SKIN MASS [None]
  - OEDEMA PERIPHERAL [None]
  - TOXICITY TO VARIOUS AGENTS [None]
  - HYPERSENSITIVITY [None]
